FAERS Safety Report 5642634-2 (Version None)
Quarter: 2008Q1

REPORT INFORMATION
  Report Type: 
  Country: None (occurrence: None)
  Receive Date: 20080226
  Receipt Date: 20080211
  Transmission Date: 20080703
  Serious: Yes (Hospitalization)
  Sender: FDA-Public Use
  Company Number: PAR_02117_2008

PATIENT
  Age: 17 Year
  Sex: Male

DRUGS (5)
  1. IBUPROFEN [Suspect]
     Indication: SUICIDE ATTEMPT
     Dosage: (DF, 20 TABLETS; NOT THE PRESCRIBED AMOUNT ORAL)
     Route: 048
  2. ACETYLSALICYLIC ACID SRT [Suspect]
     Indication: SUICIDE ATTEMPT
     Dosage: (DF, 30 TABLETS; NOT THE PRESCRIBED AMOUNT ORAL)
     Route: 048
  3. ACETAMINOPHEN [Suspect]
     Indication: SUICIDE ATTEMPT
     Dosage: (DF, 30 TABLETS; NOT THE PRESCRIBED AMOUNT ORAL)
     Route: 048
  4. BENADRYL [Suspect]
     Indication: SUICIDE ATTEMPT
     Dosage: ( DF, 16 TABLETS; NOT THE PRESCRIBED AMOUNT ORAL)
     Route: 048
  5. DIPIRONA /00039503/ ('DIPIRONE') [Suspect]
     Indication: SUICIDE ATTEMPT
     Dosage: (DF, 20 TABLETS; NOT THE PRESCRIBED AMOUNT ORAL)
     Route: 048

REACTIONS (6)
  - DIZZINESS [None]
  - INCORRECT DOSE ADMINISTERED [None]
  - LETHARGY [None]
  - SOMNOLENCE [None]
  - SUICIDE ATTEMPT [None]
  - VOMITING [None]
